FAERS Safety Report 26165275 (Version 1)
Quarter: 2025Q4

REPORT INFORMATION
  Report Type: Spontaneous
  Country: US (occurrence: None)
  Receive Date: 20251216
  Receipt Date: 20251216
  Transmission Date: 20260118
  Serious: Yes (Death)
  Sender: FDA-CTU
  Company Number: None

PATIENT
  Sex: Female

DRUGS (1)
  1. EVEROLIMUS [Suspect]
     Active Substance: EVEROLIMUS
     Indication: Breast cancer
     Dosage: TAKE 1 TABLET BY MOUTH EVERY DAY. TAKE WHOLE WITH WATER, WITH OR WITHOUT FOOD.
     Route: 048
     Dates: start: 20251002

REACTIONS (1)
  - Death [None]
